FAERS Safety Report 21570778 (Version 2)
Quarter: 2023Q1

REPORT INFORMATION
  Report Type: Report from Study
  Country: US (occurrence: None)
  Receive Date: 20221109
  Receipt Date: 20230110
  Transmission Date: 20230417
  Serious: Yes (Other)
  Sender: FDA-Public Use
  Company Number: US-ROCHE-3193767

PATIENT
  Age: 86 Year
  Sex: Male
  Weight: 100.3 kg

DRUGS (2)
  1. IBRUTINIB [Suspect]
     Active Substance: IBRUTINIB
     Indication: Chronic lymphocytic leukaemia
     Dosage: LAST ADMINISTERED DATE; 12/SEP/2022, TOTAL DOSE ADMINISTERED: 35280 MG?CYCLE=28DAY CYCLES16
     Route: 048
     Dates: start: 20191209
  2. OBINUTUZUMAB [Suspect]
     Active Substance: OBINUTUZUMAB
     Indication: Chronic lymphocytic leukaemia
     Dosage: LAST ADMINISTERED DATE; 27/APR/2020?CYCLE=28DAY CYCLES1
     Route: 042
     Dates: start: 20191209, end: 20200427

REACTIONS (1)
  - Second primary malignancy [Recovered/Resolved with Sequelae]

NARRATIVE: CASE EVENT DATE: 20220606
